FAERS Safety Report 17944875 (Version 1)
Quarter: 2020Q2

REPORT INFORMATION
  Report Type: Spontaneous
  Country: US (occurrence: US)
  Receive Date: 20200626
  Receipt Date: 20200626
  Transmission Date: 20200714
  Serious: No
  Sender: FDA-Public Use
  Company Number: US-009507513-2006USA004112

PATIENT
  Age: 41 Year
  Sex: Female

DRUGS (3)
  1. SIVEXTRO [Suspect]
     Active Substance: TEDIZOLID PHOSPHATE
     Dosage: 200 MG ONCE A DAY, BY MOUTH
     Route: 048
     Dates: start: 202004
  2. MINOCYCLINE [Concomitant]
     Active Substance: MINOCYCLINE HYDROCHLORIDE
     Dosage: UNK
  3. SIVEXTRO [Suspect]
     Active Substance: TEDIZOLID PHOSPHATE
     Indication: STAPHYLOCOCCAL INFECTION
     Dosage: 200 MG ONCE A DAY, BY MOUTH
     Route: 048
     Dates: start: 202001, end: 2020

REACTIONS (3)
  - Product use issue [Unknown]
  - Tooth discolouration [Unknown]
  - Calcium metabolism disorder [Unknown]

NARRATIVE: CASE EVENT DATE: 202005
